FAERS Safety Report 9399202 (Version 3)
Quarter: 2014Q2

REPORT INFORMATION
  Report Type: Spontaneous
  Country: JP (occurrence: None)
  Receive Date: 20130709
  Receipt Date: 20140418
  Transmission Date: 20141212
  Serious: Yes (Other)
  Sender: FDA-Public Use
  Company Number: VAL_02616_2013

PATIENT
  Age: 81 Year
  Sex: Female
  Weight: 37 kg

DRUGS (4)
  1. LOPRESSOR (LOPRESSOR (METOPROLOL TARTRATE)) [Suspect]
     Indication: PRODUCT USED FOR UNKNOWN INDICATION
     Dosage: (DF)
  2. HEPARIN [Concomitant]
  3. ANTICOAGULANTS [Concomitant]
  4. NAFAMOSTAT [Concomitant]

REACTIONS (5)
  - Platelet count decreased [None]
  - Heparin-induced thrombocytopenia [None]
  - Eosinophil count increased [None]
  - Haemodialysis [None]
  - Fat embolism [None]
